FAERS Safety Report 17688370 (Version 2)
Quarter: 2020Q2

REPORT INFORMATION
  Report Type: Spontaneous
  Country: US (occurrence: US)
  Receive Date: 20200421
  Receipt Date: 20200625
  Transmission Date: 20200714
  Serious: No
  Sender: FDA-Public Use
  Company Number: US-BRISTOL-MYERS SQUIBB COMPANY-BMS-2020-030991

PATIENT
  Age: 54 Year
  Sex: Male

DRUGS (1)
  1. YERVOY [Suspect]
     Active Substance: IPILIMUMAB
     Indication: PANCREATIC CARCINOMA
     Dosage: 65 MILLIGRAM, Q6WK
     Route: 042

REACTIONS (2)
  - Intentional product use issue [Unknown]
  - Adverse event [Unknown]

NARRATIVE: CASE EVENT DATE: 20200324
